FAERS Safety Report 6480467-8 (Version None)
Quarter: 2009Q4

REPORT INFORMATION
  Report Type: 
  Country: None (occurrence: None)
  Receive Date: 20091202
  Receipt Date: 20091120
  Transmission Date: 20100525
  Serious: Yes (Hospitalization)
  Sender: FDA-Public Use
  Company Number: TPA2009A03444

PATIENT
  Age: 55 Year
  Sex: Male

DRUGS (7)
  1. ULORIC [Suspect]
     Indication: GOUT
     Dosage: 40 MG, PER ORAL ; 80 MG, 1 IN 1 D, PER ORAL
     Route: 048
     Dates: start: 20090601, end: 20090101
  2. ULORIC [Suspect]
     Indication: HYPERURICAEMIA
     Dosage: 40 MG, PER ORAL ; 80 MG, 1 IN 1 D, PER ORAL
     Route: 048
     Dates: start: 20090601, end: 20090101
  3. ULORIC [Suspect]
     Indication: GOUT
     Dosage: 40 MG, PER ORAL ; 80 MG, 1 IN 1 D, PER ORAL
     Route: 048
     Dates: start: 20090713
  4. ULORIC [Suspect]
     Indication: HYPERURICAEMIA
     Dosage: 40 MG, PER ORAL ; 80 MG, 1 IN 1 D, PER ORAL
     Route: 048
     Dates: start: 20090713
  5. BYSTOLIC [Suspect]
     Indication: BLOOD PRESSURE INCREASED
     Dosage: 5 MG, 1 IN 1 D, PER ORAL
     Route: 048
  6. BYSTOLIC [Suspect]
     Indication: CARDIAC FAILURE CONGESTIVE
     Dosage: 5 MG, 1 IN 1 D, PER ORAL
     Route: 048
  7. COLCHICINE (COLCHICINE) [Concomitant]

REACTIONS (1)
  - CARDIAC FAILURE ACUTE [None]
